FAERS Safety Report 23689105 (Version 1)
Quarter: 2024Q1

REPORT INFORMATION
  Report Type: Report from Study
  Country: CO (occurrence: CO)
  Receive Date: 20240330
  Receipt Date: 20240330
  Transmission Date: 20240410
  Serious: Yes (Death, Hospitalization)
  Sender: FDA-Public Use
  Company Number: CO-ABBVIE-5696558

PATIENT
  Age: 83 Year
  Sex: Male

DRUGS (2)
  1. BOTOX [Suspect]
     Active Substance: ONABOTULINUMTOXINA
     Indication: Facial spasm
     Dosage: TIME INTERVAL: AS NECESSARY: FORM STRENGTH: 100 UNIT
     Route: 030
     Dates: start: 20231123, end: 20231123
  2. CARBIDOPA AND LEVODOPA [Concomitant]
     Active Substance: CARBIDOPA\LEVODOPA
     Indication: Parkinson^s disease
     Dosage: 25 MG/ 250 MG
     Route: 048
     Dates: start: 2014, end: 2024

REACTIONS (8)
  - Dysphagia [Fatal]
  - Bone fissure [Unknown]
  - Musculoskeletal stiffness [Fatal]
  - Haematoma [Not Recovered/Not Resolved]
  - Head injury [Not Recovered/Not Resolved]
  - Tracheal stenosis [Fatal]
  - Fall [Unknown]
  - Hospitalisation [Unknown]

NARRATIVE: CASE EVENT DATE: 20240220
